FAERS Safety Report 5604911-0 (Version None)
Quarter: 2008Q1

REPORT INFORMATION
  Report Type: 
  Country: None (occurrence: None)
  Receive Date: 20080111
  Receipt Date: 20070312
  Transmission Date: 20080703
  Serious: Yes (Other)
  Sender: FDA-Public Use
  Company Number: HQWYE002010MAR05

PATIENT
  Age: 63 Year
  Sex: Female

DRUGS (3)
  1. PREMPRO [Suspect]
     Dates: start: 19950101, end: 20030225
  2. PREMARIN [Suspect]
     Dates: start: 19910101, end: 19950101
  3. PROVERA [Suspect]
     Dates: start: 19910101, end: 19950101

REACTIONS (3)
  - DEEP VEIN THROMBOSIS [None]
  - OVARIAN CANCER METASTATIC [None]
  - PULMONARY EMBOLISM [None]
